FAERS Safety Report 9901652 (Version 1)
Quarter: 2014Q1

REPORT INFORMATION
  Report Type: Spontaneous
  Country: US (occurrence: US)
  Receive Date: 20140217
  Receipt Date: 20140217
  Transmission Date: 20141002
  Serious: Yes (Other)
  Sender: FDA-Public Use
  Company Number: ALCN2014US001025

PATIENT
  Sex: Male

DRUGS (4)
  1. ILEVRO [Suspect]
     Indication: POSTOPERATIVE CARE
     Dosage: 1 GTT, QD
  2. ILEVRO [Suspect]
     Indication: PREOPERATIVE CARE
  3. DUREZOL [Suspect]
     Indication: POSTOPERATIVE CARE
     Dosage: 1 GTT, BID
  4. DUREZOL [Suspect]
     Dosage: 1 GTT, QID
     Route: 047

REACTIONS (1)
  - Cystoid macular oedema [Unknown]
